FAERS Safety Report 25285843 (Version 1)
Quarter: 2025Q2

REPORT INFORMATION
  Report Type: Spontaneous
  Country: US (occurrence: US)
  Receive Date: 20250509
  Receipt Date: 20250509
  Transmission Date: 20250717
  Serious: Yes (Hospitalization, Other)
  Sender: BIOVITRUM
  Company Number: US-BIOVITRUM-2025-US-006398

PATIENT
  Age: 91 Year
  Sex: Male

DRUGS (1)
  1. PACRITINIB [Suspect]
     Active Substance: PACRITINIB
     Indication: Product used for unknown indication
     Route: 048

REACTIONS (3)
  - Blood creatine abnormal [Unknown]
  - Urosepsis [Not Recovered/Not Resolved]
  - Glomerular filtration rate abnormal [Unknown]
